FAERS Safety Report 8514522-5 (Version None)
Quarter: 2012Q3

REPORT INFORMATION
  Report Type: 
  Country: None (occurrence: None)
  Receive Date: 20120717
  Receipt Date: 20120712
  Transmission Date: 20120928
  Serious: Yes (Hospitalization, Congenital Anomaly, Other)
  Sender: FDA-Public Use
  Company Number: US-PFIZER INC-2011285842

PATIENT
  Sex: Male
  Weight: 3.6 kg

DRUGS (4)
  1. ZOLOFT [Suspect]
     Dosage: 100 MG, EVERYDAY
     Route: 064
     Dates: start: 20090211
  2. EFFEXOR [Concomitant]
     Indication: DEPRESSION
     Dosage: UNK
     Route: 064
  3. ZOLOFT [Suspect]
     Indication: DEPRESSION
     Dosage: UNK
     Route: 064
     Dates: start: 20081121
  4. MULTI-VITAMINS [Concomitant]
     Dosage: UNK
     Route: 064

REACTIONS (20)
  - OTITIS MEDIA [None]
  - ATRIAL SEPTAL DEFECT [None]
  - ANKYLOGLOSSIA CONGENITAL [None]
  - FEEDING DISORDER [None]
  - RETROGNATHIA [None]
  - CIRCUMCISION [None]
  - UPPER AIRWAY OBSTRUCTION [None]
  - FAILURE TO THRIVE [None]
  - CLEFT PALATE [None]
  - BRONCHIAL HYPERREACTIVITY [None]
  - MATERNAL EXPOSURE TIMING UNSPECIFIED [None]
  - PIERRE ROBIN SYNDROME [None]
  - GASTROOESOPHAGEAL REFLUX DISEASE [None]
  - APERT'S SYNDROME [None]
  - HYPOSPADIAS [None]
  - CRANIOSYNOSTOSIS [None]
  - CONGENITAL ACROCHORDON [None]
  - MICROGNATHIA [None]
  - CONCUSSION [None]
  - DEVELOPMENTAL DELAY [None]
